FAERS Safety Report 9005931 (Version 1)
Quarter: 2013Q1

REPORT INFORMATION
  Report Type: Spontaneous
  Country: US (occurrence: US)
  Receive Date: 20130109
  Receipt Date: 20130109
  Transmission Date: 20140127
  Serious: Yes (Other)
  Sender: FDA-Public Use
  Company Number: US-009507513-1301USA001570

PATIENT
  Age: 33 Year
  Sex: Male

DRUGS (5)
  1. SINGULAIR [Suspect]
  2. RISPERDAL [Suspect]
  3. SEROQUEL [Suspect]
     Route: 048
  4. METHADONE [Suspect]
     Indication: ANXIETY
  5. REMERON [Suspect]
     Indication: SLEEP DISORDER

REACTIONS (3)
  - Liver function test abnormal [Unknown]
  - Jaundice [Unknown]
  - Alanine aminotransferase increased [Unknown]
